FAERS Safety Report 4932283-3 (Version None)
Quarter: 2006Q1

REPORT INFORMATION
  Report Type: 
  Country: None (occurrence: None)
  Receive Date: 20060228
  Receipt Date: 20060215
  Transmission Date: 20060701
  Serious: Yes (Hospitalization)
  Sender: FDA-Public Use
  Company Number: 2006024825

PATIENT
  Age: 69 Year
  Sex: Female

DRUGS (12)
  1. ATARAX [Suspect]
     Indication: ILL-DEFINED DISORDER
     Dosage: 25 MG (25 MG, 1 IN 1 D), ORAL
     Route: 048
     Dates: start: 20060102, end: 20060113
  2. FLUCONAZOLE [Suspect]
     Indication: ILL-DEFINED DISORDER
     Dosage: 200 MG (200 MG, 1 IN 1 D), ORAL
     Route: 048
     Dates: start: 20051215, end: 20060113
  3. TAZOCILLINE (PIPERACILLIN SODIUM, TAZOBACTAM SODIUM) [Suspect]
     Indication: ENDOCARDITIS BACTERIAL
     Dosage: 4 GRAM (3 IN 1 D), INTRAVENOUS
     Route: 042
     Dates: start: 20051215, end: 20060113
  4. TAMOXIFEN CITRATE [Suspect]
     Indication: BREAST CANCER
     Dosage: 20 MG, 1 IN 1 D, ORAL
     Route: 048
     Dates: end: 20060113
  5. OMEPRAZOLE [Suspect]
     Indication: ILL-DEFINED DISORDER
     Dosage: 20 MG (20 MG, 1 IN 1 D), ORAL
     Route: 048
     Dates: end: 20060113
  6. ACETYLCYSTEINE [Suspect]
     Indication: ILL-DEFINED DISORDER
     Dosage: 1 DOSE FORM (1 IN 1 D), ORAL
     Route: 048
     Dates: start: 20051215, end: 20060113
  7. PRAVASTATIN [Concomitant]
  8. COVERSYL (PERINDOPRIL) [Concomitant]
  9. FUROSEMIDE [Concomitant]
  10. UMULINE (INSULIN HUMAN ZINC SUSPENSION) [Concomitant]
  11. PREDNISONE [Concomitant]
  12. SERETIDE (FLUTICASONE PROPIONATE, SALMETEROL XINAFOATE) [Concomitant]

REACTIONS (3)
  - AGRANULOCYTOSIS [None]
  - ERYTHROBLASTOSIS [None]
  - GRANULOMA [None]
